FAERS Safety Report 25705719 (Version 1)
Quarter: 2025Q3

REPORT INFORMATION
  Report Type: Spontaneous
  Country: CN (occurrence: CN)
  Receive Date: 20250820
  Receipt Date: 20250820
  Transmission Date: 20251020
  Serious: Yes (Other)
  Sender: SANOFI AVENTIS
  Company Number: CN-SA-2025SA246241

PATIENT
  Age: 71 Year
  Sex: Female
  Weight: 35 kg

DRUGS (3)
  1. OXALIPLATIN [Suspect]
     Active Substance: OXALIPLATIN
     Indication: Gastric cancer
     Dosage: 150 MG, QD
     Route: 041
     Dates: start: 20250709, end: 20250709
  2. OXALIPLATIN [Suspect]
     Active Substance: OXALIPLATIN
     Dosage: 90 MG, QD
     Dates: start: 20250710, end: 20250710
  3. SINTILIMAB [Concomitant]
     Active Substance: SINTILIMAB
     Indication: Gastric cancer
     Dosage: 200 MG, QD
     Route: 041
     Dates: start: 20250709, end: 20250709

REACTIONS (3)
  - Anaphylactic reaction [Recovering/Resolving]
  - Chest discomfort [Recovering/Resolving]
  - Dyspnoea [Recovering/Resolving]

NARRATIVE: CASE EVENT DATE: 20250709
